FAERS Safety Report 16347087 (Version 1)
Quarter: 2019Q2

REPORT INFORMATION
  Report Type: Spontaneous
  Country: US (occurrence: US)
  Receive Date: 20190523
  Receipt Date: 20190523
  Transmission Date: 20190711
  Serious: No
  Sender: FDA-Public Use
  Company Number: US-TARO-2018TAR00706

PATIENT
  Age: 1 Year
  Sex: Male
  Weight: 9.07 kg

DRUGS (5)
  1. FEVERALL INFANTS [Suspect]
     Active Substance: ACETAMINOPHEN
     Indication: PYREXIA
     Dosage: 160 MG, EVERY 4 TO 6 HOURS AS NEEDED
     Route: 054
     Dates: start: 201809
  2. FEVERALL INFANTS [Suspect]
     Active Substance: ACETAMINOPHEN
     Dosage: UNK, EVERY 4 TO 6 HOURS AS NEEDED
     Route: 054
     Dates: start: 20180923, end: 201809
  3. IBUPROFEN. [Concomitant]
     Active Substance: IBUPROFEN
  4. FEVERALL INFANTS [Suspect]
     Active Substance: ACETAMINOPHEN
     Dosage: 160 MG, EVERY 4 TO 6 HOURS AS NEEDED
     Route: 054
     Dates: start: 201809
  5. FEVERALL INFANTS [Suspect]
     Active Substance: ACETAMINOPHEN
     Dosage: UNK, EVERY 4 TO 6 HOURS AS NEEDED
     Route: 054
     Dates: start: 20180923, end: 201809

REACTIONS (4)
  - Incorrect dose administered [Not Recovered/Not Resolved]
  - Drug ineffective [Not Recovered/Not Resolved]
  - Prescribed overdose [Not Recovered/Not Resolved]
  - Product quality issue [Not Recovered/Not Resolved]

NARRATIVE: CASE EVENT DATE: 201809
